FAERS Safety Report 6768204-0 (Version None)
Quarter: 2010Q2

REPORT INFORMATION
  Report Type: 
  Country: None (occurrence: None)
  Receive Date: 20100614
  Receipt Date: 20100609
  Transmission Date: 20101027
  Serious: Yes (Hospitalization)
  Sender: FDA-Public Use
  Company Number: US-MERCK-1006USA01548

PATIENT
  Age: 74 Year
  Sex: Female

DRUGS (6)
  1. HYZAAR [Suspect]
     Indication: HYPERTENSION
     Route: 048
     Dates: start: 19920101
  2. TRAMADOL HYDROCHLORIDE [Concomitant]
     Route: 065
  3. LIPITOR [Concomitant]
     Route: 065
  4. TOPROL-XL [Concomitant]
     Route: 065
  5. XALATAN [Concomitant]
     Route: 065
  6. TIMOLOL [Concomitant]
     Route: 065

REACTIONS (4)
  - ADVERSE EVENT [None]
  - CONSTIPATION [None]
  - DRY MOUTH [None]
  - SCOLIOSIS [None]
